FAERS Safety Report 15789638 (Version 1)
Quarter: 2019Q1

REPORT INFORMATION
  Report Type: Spontaneous
  Country: ES (occurrence: ES)
  Receive Date: 20190104
  Receipt Date: 20190104
  Transmission Date: 20190417
  Serious: Yes (Disabling)
  Sender: FDA-Public Use
  Company Number: ES-ABBVIE-19K-144-2612996-00

PATIENT
  Age: 66 Year
  Sex: Female
  Weight: 76 kg

DRUGS (1)
  1. HUMIRA [Suspect]
     Active Substance: ADALIMUMAB
     Indication: CROHN^S DISEASE
     Route: 058
     Dates: start: 20150814

REACTIONS (1)
  - Demyelinating polyneuropathy [Unknown]

NARRATIVE: CASE EVENT DATE: 20180703
